FAERS Safety Report 8862446 (Version 3)
Quarter: 2012Q4

REPORT INFORMATION
  Report Type: 
  Country: IT (occurrence: IT)
  Receive Date: 20121026
  Receipt Date: 20121030
  Transmission Date: 20130627
  Serious: Yes (Hospitalization)
  Sender: FDA-Public Use
  Company Number: IT-JNJFOC-20121010891

PATIENT
  Age: 12 Year
  Sex: Male

DRUGS (6)
  1. DOXORUBICIN [Suspect]
     Indication: BONE SARCOMA
     Route: 042
  2. CISPLATIN [Suspect]
     Indication: BONE SARCOMA
     Route: 065
  3. METHOTREXATE [Suspect]
     Indication: BONE SARCOMA
     Route: 065
  4. IFOSFAMIDE [Suspect]
     Indication: BONE SARCOMA
     Dosage: (protocol IOR-OS2)
     Route: 065
  5. ETOPOSIDE [Suspect]
     Indication: BONE SARCOMA
     Dosage: (protocol IOR-OS2)
     Route: 065
  6. CISPLATIN [Suspect]
     Indication: BONE SARCOMA
     Dosage: protocol IOR-OS2
     Route: 013

REACTIONS (4)
  - Myeloid leukaemia [Unknown]
  - Metastases to breast [Unknown]
  - Li-Fraumeni syndrome [Unknown]
  - Off label use [Unknown]
